FAERS Safety Report 8318753-9 (Version None)
Quarter: 2012Q1

REPORT INFORMATION
  Report Type: 
  Country: None (occurrence: None)
  Receive Date: 20120315
  Receipt Date: 20110608
  Transmission Date: 20120608
  Serious: Yes (Other)
  Sender: FDA-Public Use
  Company Number: PHHY2011US51104

PATIENT
  Age: 29 Year
  Sex: Female

DRUGS (6)
  1. OXYBUTYNIN [Concomitant]
  2. LOW-OGESTREL (ETHINYLESTRADIOL, LEVONORGESTREL) [Concomitant]
  3. GILENYA [Suspect]
     Indication: MULTIPLE SCLEROSIS
     Dosage: 0.5 MG, ORAL
     Route: 048
     Dates: start: 20110329
  4. PAROXETINE HCL [Concomitant]
  5. LORAZEPAM [Concomitant]
  6. GABAPENTIN [Concomitant]

REACTIONS (1)
  - DEPRESSION [None]
